FAERS Safety Report 5675525-1 (Version None)
Quarter: 2008Q2

REPORT INFORMATION
  Report Type: 
  Country: None (occurrence: None)
  Receive Date: 20080312
  Receipt Date: 20071023
  Transmission Date: 20081010
  Serious: Yes (Other)
  Sender: FDA-Public Use
  Company Number: 2007-0013733

PATIENT
  Age: 37 Year
  Sex: Male
  Weight: 87.9978 kg

DRUGS (8)
  1. ATRIPLA [Suspect]
     Indication: HIV INFECTION
     Dosage: 1 IN 1 D, ORAL
     Route: 048
     Dates: start: 20060929, end: 20071009
  2. MULTIVITAMIN [Concomitant]
  3. LEXAPRO [Concomitant]
  4. ATENOLOL [Concomitant]
  5. TERAZOSIN HCL [Concomitant]
  6. NEXIUM [Concomitant]
  7. SUSTIVA [Concomitant]
  8. EPZICOM (ABAVACIR W/LAMIVUDINE) [Concomitant]

REACTIONS (1)
  - NEPHROPATHY [None]
